FAERS Safety Report 19522251 (Version 1)
Quarter: 2021Q3

REPORT INFORMATION
  Report Type: Spontaneous
  Country: PL (occurrence: PL)
  Receive Date: 20210712
  Receipt Date: 20210712
  Transmission Date: 20211014
  Serious: Yes (Death, Other)
  Sender: FDA-Public Use
  Company Number: PL-BAYER-2021-166658

PATIENT
  Age: 73 Year
  Sex: Male
  Weight: 65 kg

DRUGS (7)
  1. XOFIGO [Suspect]
     Active Substance: RADIUM RA-223 DICHLORIDE
     Indication: NEOPLASM PROSTATE
     Dosage: UNK
     Dates: start: 20201022, end: 20201022
  2. XOFIGO [Suspect]
     Active Substance: RADIUM RA-223 DICHLORIDE
     Indication: NEOPLASM PROSTATE
     Dosage: UNK
  3. XOFIGO [Suspect]
     Active Substance: RADIUM RA-223 DICHLORIDE
     Indication: NEOPLASM PROSTATE
     Dosage: UNK
  4. XOFIGO [Suspect]
     Active Substance: RADIUM RA-223 DICHLORIDE
     Indication: NEOPLASM PROSTATE
     Dosage: UNK
  5. XOFIGO [Suspect]
     Active Substance: RADIUM RA-223 DICHLORIDE
     Indication: NEOPLASM PROSTATE
     Dosage: UNK
     Dates: start: 20201123, end: 20201123
  6. XOFIGO [Suspect]
     Active Substance: RADIUM RA-223 DICHLORIDE
     Indication: NEOPLASM PROSTATE
     Dosage: UNK
     Route: 042
  7. XOFIGO [Suspect]
     Active Substance: RADIUM RA-223 DICHLORIDE
     Indication: NEOPLASM PROSTATE
     Dosage: UNK

REACTIONS (7)
  - Thrombocytopenia [Fatal]
  - Neutropenia [Fatal]
  - Myelosuppression [Fatal]
  - Coagulopathy [None]
  - Pancytopenia [Fatal]
  - Leukopenia [Fatal]
  - Anaemia [None]

NARRATIVE: CASE EVENT DATE: 20210430
